FAERS Safety Report 13371559 (Version 1)
Quarter: 2017Q1

REPORT INFORMATION
  Report Type: Spontaneous
  Country: GB (occurrence: GB)
  Receive Date: 20170324
  Receipt Date: 20170324
  Transmission Date: 20170429
  Serious: Yes (Life-Threatening, Other)
  Sender: FDA-Public Use
  Company Number: GB-INTERNATIONAL MEDICATION SYSTEMS, LIMITED-1064631

PATIENT
  Age: 64 Year
  Sex: Female
  Weight: 89.4 kg

DRUGS (8)
  1. AUGMENTIN [Suspect]
     Active Substance: AMOXICILLIN\CLAVULANATE POTASSIUM
     Route: 042
     Dates: start: 20170126, end: 20170126
  2. ROCURONIUM [Concomitant]
     Active Substance: ROCURONIUM BROMIDE
  3. BENDROFLUMETHIAZIDE [Concomitant]
     Active Substance: BENDROFLUMETHIAZIDE
  4. DEXAMETHASONE. [Concomitant]
     Active Substance: DEXAMETHASONE
  5. STEROIDS [Concomitant]
     Active Substance: UNSPECIFIED INGREDIENT
  6. MORPHINE SULFATE. [Suspect]
     Active Substance: MORPHINE SULFATE
     Route: 042
     Dates: start: 20170126, end: 20170126
  7. FENTANYL. [Concomitant]
     Active Substance: FENTANYL
  8. PROPOFOL. [Concomitant]
     Active Substance: PROPOFOL

REACTIONS (3)
  - Circulatory collapse [Unknown]
  - Bronchospasm [Unknown]
  - Anaphylactic reaction [Recovered/Resolved]
